FAERS Safety Report 7463621-8 (Version None)
Quarter: 2011Q2

REPORT INFORMATION
  Report Type: 
  Country: None (occurrence: None)
  Receive Date: 20110506
  Receipt Date: 20110425
  Transmission Date: 20111010
  Serious: Yes (Other)
  Sender: FDA-Public Use
  Company Number: US-ELI_LILLY_AND_COMPANY-US201003008661

PATIENT
  Sex: Female

DRUGS (21)
  1. ALPRAZOLAM [Concomitant]
     Dosage: 0.25 MG, AS NEEDED
  2. SYMBICORT [Concomitant]
  3. SPIRIVA [Concomitant]
     Dosage: 2 D/F, EACH MORNING
     Route: 045
  4. FORTEO [Suspect]
     Indication: OSTEOPOROSIS
     Dosage: 20 UG, DAILY (1/D)
     Route: 065
     Dates: start: 20091228
  5. FORTEO [Suspect]
     Dosage: 20 UG, DAILY (1/D)
  6. FORTEO [Suspect]
     Dosage: 20 UG, DAILY (1/D)
  7. FORTEO [Suspect]
     Dosage: 20 UG, QD
  8. ZANTAC [Concomitant]
     Dosage: 300 MG, 2/D
  9. CRESTOR [Concomitant]
     Dosage: 30 MG, DAILY (1/D)
  10. FLUOXETINE [Concomitant]
     Dosage: 40 MG, DAILY (1/D)
  11. OXYGEN [Concomitant]
     Dosage: EVERY NIGHT AND DURING THE DAY AS NEEDED
     Route: 045
  12. VITAMIN E /001105/ [Concomitant]
     Dosage: 1 D/F, UNK
  13. ALBUTEROL [Concomitant]
     Dosage: UNK, AS NEEDED
  14. CALCIUM PLUS D3 [Concomitant]
     Dosage: 2 D/F, DAILY (1/D)
  15. ASPIRIN [Concomitant]
     Dosage: 81 MG, DAILY (1/D)
  16. AMLODIPINE BESYLATE [Concomitant]
     Dosage: 5 MG, DAILY (1/D)
  17. MULTI-VITAMIN [Concomitant]
     Dosage: UNK, DAILY (1/D)
  18. KLOR-CON [Concomitant]
     Dosage: 10 MG, DAILY (1/D)
  19. NITROGLYCERIN [Concomitant]
     Dosage: 0.4 MG, AS NEEDED
  20. NEFAZODONE [Concomitant]
     Dosage: 100 MG, 2/D
  21. FUROSEMIDE [Concomitant]
     Dosage: 40 MG, DAILY (1/D)

REACTIONS (12)
  - CONTUSION [None]
  - HEAD INJURY [None]
  - DARK CIRCLES UNDER EYES [None]
  - FATIGUE [None]
  - THYROID DISORDER [None]
  - SWELLING FACE [None]
  - ALOPECIA [None]
  - SURGERY [None]
  - BACK PAIN [None]
  - FALL [None]
  - ARTHRALGIA [None]
  - DIARRHOEA [None]
